FAERS Safety Report 8376672-6 (Version None)
Quarter: 2012Q2

REPORT INFORMATION
  Report Type: 
  Country: None (occurrence: None)
  Receive Date: 20120522
  Receipt Date: 20120511
  Transmission Date: 20120825
  Serious: Yes (Hospitalization)
  Sender: FDA-Public Use
  Company Number: US-VIROPHARMA INCORPORATED-20120511CINRY2960

PATIENT
  Sex: Female
  Weight: 68.554 kg

DRUGS (14)
  1. CINRYZE [Suspect]
     Dates: start: 20120101
  2. LIPITOR [Concomitant]
     Indication: PRODUCT USED FOR UNKNOWN INDICATION
     Route: 048
  3. AMBIEN [Concomitant]
     Indication: INSOMNIA
     Route: 048
  4. COUMADIN [Concomitant]
     Route: 048
  5. CINRYZE [Suspect]
     Indication: HEREDITARY ANGIOEDEMA
     Dates: start: 20090101, end: 20120101
  6. COUMADIN [Concomitant]
     Indication: DEEP VEIN THROMBOSIS
     Route: 048
  7. XOPENEX [Concomitant]
     Indication: ASTHMA
  8. ALVESCO [Concomitant]
     Indication: ASTHMA
  9. VITAMIN B-12 [Concomitant]
     Indication: ANAEMIA VITAMIN B12 DEFICIENCY
     Route: 060
  10. FIRAZYR [Concomitant]
     Indication: HEREDITARY ANGIOEDEMA
     Dosage: TOTAL OF 3 INJECTIONS WITH 24-HOURS
     Route: 058
  11. FLUOXETINE [Concomitant]
     Indication: DEPRESSION
     Route: 048
  12. LORAZEPAM [Concomitant]
     Indication: NAUSEA
     Route: 048
  13. PERCOCET [Concomitant]
     Indication: ABDOMINAL PAIN
     Dosage: 5 MG/325 MG
     Route: 048
  14. CLONAZEPAM [Concomitant]
     Indication: ANXIETY
     Route: 048

REACTIONS (1)
  - HOSPITALISATION [None]
